FAERS Safety Report 26203630 (Version 1)
Quarter: 2025Q4

REPORT INFORMATION
  Report Type: Spontaneous
  Country: JP (occurrence: JP)
  Receive Date: 20251226
  Receipt Date: 20251226
  Transmission Date: 20260117
  Serious: Yes (Other)
  Sender: UCB
  Company Number: JP-UCBJ-CD202516686UCBPHAPROD

PATIENT
  Age: 3 Decade

DRUGS (1)
  1. ZILBRYSQ [Suspect]
     Active Substance: ZILUCOPLAN
     Indication: Myasthenia gravis
     Dosage: 23 MILLIGRAM, ONCE DAILY (QD)

REACTIONS (3)
  - Myasthenia gravis [Not Recovered/Not Resolved]
  - Dyspnoea [Unknown]
  - Therapeutic response decreased [Unknown]
